FAERS Safety Report 15378076 (Version 1)
Quarter: 2018Q3

REPORT INFORMATION
  Report Type: Spontaneous
  Country: US (occurrence: US)
  Receive Date: 20180906
  Receipt Date: 20180906
  Transmission Date: 20181010
  Serious: No
  Sender: FDA-Public Use
  Company Number: None

PATIENT
  Age: 69 Year
  Sex: Female

DRUGS (1)
  1. ENBREL [Suspect]
     Active Substance: ETANERCEPT
     Indication: ANKYLOSING SPONDYLITIS
     Dosage: INJECT 25MG SUBCUTANEOUSLY TWO TIMES A WEEK 72?96 HOURS APART AS DIRECTED
     Route: 058
     Dates: start: 201507

REACTIONS (1)
  - Liver disorder [None]
